FAERS Safety Report 15067440 (Version 1)
Quarter: 2018Q2

REPORT INFORMATION
  Report Type: Spontaneous
  Country: BR (occurrence: BR)
  Receive Date: 20180626
  Receipt Date: 20180626
  Transmission Date: 20180711
  Serious: Yes (Other)
  Sender: FDA-Public Use
  Company Number: BR-PFIZER INC-2018256255

PATIENT
  Age: 70 Year
  Sex: Female

DRUGS (4)
  1. XALATAN [Suspect]
     Active Substance: LATANOPROST
     Indication: GLAUCOMA
     Dosage: 1 GTT, DAILY (1 DROP OF XALATAN IN THE OTHER EYE AT NIGHT)
     Route: 047
     Dates: start: 2008, end: 2009
  2. AZOPT [Concomitant]
     Active Substance: BRINZOLAMIDE
     Indication: GLAUCOMA
     Dosage: UNK
     Dates: start: 2010
  3. XALATAN [Suspect]
     Active Substance: LATANOPROST
     Dosage: 1 DROP IN EACH EYE DAILY AT NIGHT
     Route: 047
     Dates: start: 2010
  4. XALACOM [Suspect]
     Active Substance: LATANOPROST\TIMOLOL MALEATE
     Indication: GLAUCOMA
     Dosage: 1 GTT, DAILY (1 DROP OF XALACOM IN ONE EYE PER DAY AT NIGHT)
     Route: 047
     Dates: start: 2008, end: 2009

REACTIONS (2)
  - Asthma [Recovered/Resolved]
  - Cataract [Unknown]

NARRATIVE: CASE EVENT DATE: 2009
